FAERS Safety Report 5408778-5 (Version None)
Quarter: 2007Q3

REPORT INFORMATION
  Report Type: 
  Country: None (occurrence: None)
  Receive Date: 20070808
  Receipt Date: 20070727
  Transmission Date: 20080115
  Serious: Yes (Life-Threatening, Hospitalization, Disabling)
  Sender: FDA-Public Use
  Company Number: JP-PFIZER INC-2007049334

PATIENT
  Sex: Male

DRUGS (5)
  1. VFEND [Suspect]
     Indication: BRONCHOPULMONARY ASPERGILLOSIS
     Route: 048
     Dates: start: 20070605, end: 20070608
  2. CLARITHROMYCIN [Concomitant]
     Route: 048
     Dates: start: 20070412, end: 20070604
  3. MUCODYNE [Concomitant]
     Route: 048
     Dates: start: 20070412, end: 20070604
  4. HOKUNALIN [Concomitant]
     Route: 062
     Dates: start: 20070529, end: 20070604
  5. HOCHUUEKKITOU [Concomitant]
     Route: 048
     Dates: start: 20070521, end: 20070604

REACTIONS (6)
  - ASTHENIA [None]
  - DIZZINESS [None]
  - FEELING ABNORMAL [None]
  - HAEMOPTYSIS [None]
  - LOSS OF CONTROL OF LEGS [None]
  - PHOTOPHOBIA [None]
